FAERS Safety Report 8116378-1 (Version None)
Quarter: 2012Q1

REPORT INFORMATION
  Report Type: 
  Country: None (occurrence: None)
  Receive Date: 20120206
  Receipt Date: 20120131
  Transmission Date: 20120608
  Serious: Yes (Other)
  Sender: FDA-Public Use
  Company Number: FR-GLAXOSMITHKLINE-B0776855A

PATIENT
  Sex: Female

DRUGS (3)
  1. BRONCHODUAL [Concomitant]
     Indication: ASTHMA
  2. RHINOCORT [Concomitant]
     Indication: ASTHMA
  3. FLUTICASONE PROPIONATE/SALMETEROL [Suspect]
     Indication: ASTHMA
     Route: 055

REACTIONS (4)
  - DRUG INEFFECTIVE [None]
  - DEVICE FAILURE [None]
  - PRODUCT QUALITY ISSUE [None]
  - MALAISE [None]
